FAERS Safety Report 8747892 (Version 3)
Quarter: 2012Q4

REPORT INFORMATION
  Report Type: 
  Country: NL (occurrence: NL)
  Receive Date: 20120827
  Receipt Date: 20121008
  Transmission Date: 20130627
  Serious: Yes (Hospitalization, Other)
  Sender: FDA-Public Use
  Company Number: NL-CELGENEUS-114-21880-12081713

PATIENT
  Age: 77 Year
  Sex: Female
  Weight: 73 kg

DRUGS (9)
  1. REVLIMID [Suspect]
     Indication: MULTIPLE MYELOMA
     Dosage: 25 Milligram
     Route: 048
     Dates: start: 20120507, end: 20120527
  2. DEXAMETHASONE [Suspect]
     Indication: MULTIPLE MYELOMA
     Dosage: 40 Milligram
     Route: 048
     Dates: start: 20120507, end: 20120528
  3. FUROSEMIDE [Concomitant]
     Indication: CHRONIC OBSTRUCTIVE PULMONARY DISEASE
     Route: 048
     Dates: start: 20120531, end: 20120713
  4. FUROSEMIDE [Concomitant]
     Dosage: 80 Milligram
     Route: 048
     Dates: start: 20120801
  5. MOVICOLON [Concomitant]
     Indication: DRUG USE FOR UNKNOWN INDICATION
     Route: 048
  6. TEMGESIC [Concomitant]
     Indication: PAIN
     Dosage: .8 Milligram
     Route: 060
     Dates: start: 20120531
  7. DICLOFENAC [Concomitant]
     Indication: PAIN
     Dosage: 150 Milligram
     Route: 048
     Dates: start: 20120503
  8. PANTOPRAZOL [Concomitant]
     Indication: PROPHYLAXIS
     Dosage: 40 Milligram
     Route: 048
     Dates: start: 20120531
  9. APD [Concomitant]
     Indication: MULTIPLE MYELOMA
     Dosage: 30 Milligram
     Route: 041
     Dates: start: 20111007

REACTIONS (2)
  - Pyoderma gangrenosum [Not Recovered/Not Resolved]
  - Pain [Not Recovered/Not Resolved]
